FAERS Safety Report 15666158 (Version 1)
Quarter: 2018Q4

REPORT INFORMATION
  Report Type: Spontaneous
  Country: IT (occurrence: IT)
  Receive Date: 20181128
  Receipt Date: 20181128
  Transmission Date: 20190205
  Serious: Yes (Other)
  Sender: FDA-Public Use
  Company Number: IT-ASTRAZENECA-2018SF51811

PATIENT
  Age: 31293 Day
  Sex: Female

DRUGS (3)
  1. FASLODEX [Suspect]
     Active Substance: FULVESTRANT
     Dosage: 500 UNITS
     Route: 030
     Dates: start: 2014
  2. FASLODEX [Suspect]
     Active Substance: FULVESTRANT
     Dosage: 500 UNITS
     Route: 030
     Dates: start: 20181115
  3. FASLODEX [Suspect]
     Active Substance: FULVESTRANT
     Dosage: 500 UNITS
     Route: 030
     Dates: start: 20181018

REACTIONS (4)
  - Pruritus generalised [Unknown]
  - Hypersensitivity [Unknown]
  - Metastases to lung [Unknown]
  - Erythema [Unknown]

NARRATIVE: CASE EVENT DATE: 20181018
